FAERS Safety Report 13151428 (Version 1)
Quarter: 2017Q1

REPORT INFORMATION
  Report Type: Spontaneous
  Country: US (occurrence: US)
  Receive Date: 20170125
  Receipt Date: 20170125
  Transmission Date: 20170428
  Serious: No
  Sender: FDA-Public Use
  Company Number: US-KADMON PHARMACEUTICALS, LLC-KAD201603-000998

PATIENT
  Sex: Female

DRUGS (4)
  1. RIBAVIRIN 200 MG TABLETS [Suspect]
     Active Substance: RIBAVIRIN
     Indication: HEPATITIS C
     Route: 048
     Dates: start: 20151228
  2. VIEKIRA PAK [Suspect]
     Active Substance: DASABUVIR\OMBITASVIR\PARITAPREVIR\RITONAVIR
     Indication: HEPATITIS C
     Dosage: TABLET
     Route: 048
     Dates: start: 20151228
  3. ARMOUR THYROID [Concomitant]
     Active Substance: THYROID, PORCINE
  4. IRON SUPPLEMENT [Concomitant]
     Active Substance: IRON

REACTIONS (8)
  - Insomnia [Unknown]
  - Fatigue [Unknown]
  - Dyspnoea [Unknown]
  - Activities of daily living impaired [Unknown]
  - Haemoglobin decreased [Unknown]
  - Headache [Unknown]
  - Asthenia [Unknown]
  - Nausea [Unknown]
